FAERS Safety Report 9182320 (Version 1)
Quarter: 2013Q1

REPORT INFORMATION
  Report Type: Spontaneous
  Country: CA (occurrence: None)
  Receive Date: 20130321
  Receipt Date: 20130321
  Transmission Date: 20140127
  Serious: Yes (Other)
  Sender: FDA-Public Use
  Company Number: None

PATIENT
  Sex: Female

DRUGS (1)
  1. LUCENTIS [Suspect]
     Indication: RETINAL HAEMORRHAGE
     Dosage: INJECTION EYE    4/6 WEEKS

REACTIONS (8)
  - Palpitations [None]
  - Local swelling [None]
  - Pruritus [None]
  - Deafness [None]
  - Vision blurred [None]
  - Back pain [None]
  - Fall [None]
  - Gait disturbance [None]
